FAERS Safety Report 5232772-0 (Version None)
Quarter: 2007Q1

REPORT INFORMATION
  Report Type: 
  Country: None (occurrence: None)
  Receive Date: 20070207
  Receipt Date: 20060529
  Transmission Date: 20070707
  Serious: Yes (Life-Threatening, Hospitalization)
  Sender: FDA-Public Use
  Company Number: FR-BRISTOL-MYERS SQUIBB COMPANY-13662689

PATIENT
  Age: 1 Day
  Sex: Female

DRUGS (1)
  1. CORGARD [Suspect]
     Indication: MATERNAL HYPERTENSION AFFECTING FOETUS
     Route: 064
     Dates: start: 19970905

REACTIONS (5)
  - BRADYCARDIA [None]
  - CARDIAC FAILURE [None]
  - DRUG EXPOSURE DURING PREGNANCY [None]
  - HYPOGLYCAEMIA NEONATAL [None]
  - RESPIRATORY DISTRESS [None]
